FAERS Safety Report 7357537-5 (Version None)
Quarter: 2011Q1

REPORT INFORMATION
  Report Type: 
  Country: None (occurrence: None)
  Receive Date: 20110317
  Receipt Date: 20090930
  Transmission Date: 20110831
  Serious: Yes (Hospitalization, Other)
  Sender: FDA-Public Use
  Company Number: US-BAYER-200934454NA

PATIENT
  Sex: Male
  Weight: 72.562 kg

DRUGS (30)
  1. TRASYLOL [Suspect]
     Indication: CORONARY ARTERY BYPASS
     Dosage: 1ML INITIAL TEST DOSE
     Route: 042
     Dates: start: 20061122, end: 20061122
  2. ATENOLOL [Concomitant]
     Indication: BLOOD PRESSURE DECREASED
     Dosage: 25 - 50MG
     Route: 048
     Dates: start: 20040101, end: 20061122
  3. MAGNESIUM SULFATE [Concomitant]
     Indication: PRODUCT USED FOR UNKNOWN INDICATION
     Dosage: 2 GM
     Route: 042
     Dates: start: 20061122, end: 20061122
  4. MIDAZOLAM [Concomitant]
     Indication: PRODUCT USED FOR UNKNOWN INDICATION
     Dosage: 100 MG
     Route: 042
     Dates: start: 20061122, end: 20061122
  5. MILRINONE [Concomitant]
     Indication: PRODUCT USED FOR UNKNOWN INDICATION
     Dosage: IV DRIP
     Route: 042
     Dates: start: 20061122
  6. VECURONIUM BROMIDE [Concomitant]
     Indication: PRODUCT USED FOR UNKNOWN INDICATION
     Dosage: 7 MG
     Route: 042
     Dates: start: 20061122, end: 20061122
  7. COLESTID [Concomitant]
     Indication: BLOOD CHOLESTEROL DECREASED
     Dosage: 1GM
     Dates: start: 19960101, end: 20061122
  8. LOTREL [Concomitant]
     Indication: BLOOD PRESSURE DECREASED
     Dosage: 10 -20MG
     Route: 048
     Dates: start: 20050101, end: 20061122
  9. FENTANYL [Concomitant]
     Indication: PRODUCT USED FOR UNKNOWN INDICATION
     Dosage: IV DRIP
     Route: 042
     Dates: start: 20061122, end: 20061122
  10. TRASYLOL [Suspect]
     Dosage: 50ML/HOUR DRIP RATE
     Route: 042
     Dates: start: 20061122, end: 20061122
  11. HEPARIN [Concomitant]
     Indication: MYOCARDIAL INFARCTION
     Dosage: 1000UNITS/HR
     Route: 042
     Dates: start: 20061122, end: 20061122
  12. HEPARIN [Concomitant]
     Indication: SURGERY
  13. ESMOLOL HCL [Concomitant]
     Indication: PRODUCT USED FOR UNKNOWN INDICATION
     Dosage: IV DRIP
     Route: 042
     Dates: start: 20061122
  14. ETOMIDATE [Concomitant]
     Indication: PRODUCT USED FOR UNKNOWN INDICATION
     Dosage: 20MG
     Route: 042
     Dates: start: 20061122, end: 20061122
  15. NITROGLYCERIN [Concomitant]
     Indication: BLOOD PRESSURE MANAGEMENT
     Dosage: IV DRIP
     Route: 042
     Dates: start: 20061122
  16. LASIX [Concomitant]
     Indication: PRODUCT USED FOR UNKNOWN INDICATION
     Dosage: 20 MG
     Route: 042
     Dates: start: 20061122, end: 20061122
  17. DOPAMINE [Concomitant]
     Indication: PRODUCT USED FOR UNKNOWN INDICATION
     Dosage: 7.5 MCG/KG/MIN
     Route: 042
     Dates: start: 20061122, end: 20061122
  18. TRASYLOL [Suspect]
     Indication: MITRAL VALVE REPLACEMENT
     Dosage: 400ML BOLUS DOSE
     Route: 042
     Dates: start: 20061122, end: 20061122
  19. DOXAZOSIN [Concomitant]
     Indication: BENIGN PROSTATIC HYPERPLASIA
  20. POTASSIUM CHLORIDE [Concomitant]
     Indication: PRODUCT USED FOR UNKNOWN INDICATION
     Route: 042
     Dates: start: 20061122, end: 20061122
  21. SUCCINYLCHOLINE CHLORIDE [Concomitant]
     Indication: PRODUCT USED FOR UNKNOWN INDICATION
     Dosage: 120 MG
     Route: 042
     Dates: start: 20061122, end: 20061122
  22. SEVOFLURANE [Concomitant]
     Indication: PRODUCT USED FOR UNKNOWN INDICATION
     Dates: start: 20061122, end: 20061122
  23. NITROGLYCERIN [Concomitant]
     Indication: PRODUCT USED FOR UNKNOWN INDICATION
     Dosage: IV DRIP
     Route: 042
     Dates: start: 20061122
  24. ASPIRIN [Concomitant]
     Indication: ANTICOAGULANT THERAPY
     Dosage: 325MG
     Route: 048
     Dates: start: 20061122, end: 20061122
  25. PROPOFOL [Concomitant]
     Indication: PRODUCT USED FOR UNKNOWN INDICATION
     Dosage: 25MCG/KG/MIN
     Route: 042
     Dates: start: 20061122
  26. DOXAZOSIN [Concomitant]
     Indication: BLOOD PRESSURE DECREASED
     Dosage: 2 MG
     Route: 048
     Dates: start: 20050101, end: 20061122
  27. LIPITOR [Concomitant]
     Indication: BLOOD CHOLESTEROL DECREASED
     Dosage: 20 MG
     Route: 048
     Dates: start: 19990101, end: 20061122
  28. CALCIUM CHLORIDE [Concomitant]
     Indication: PRODUCT USED FOR UNKNOWN INDICATION
     Dosage: 1 GM
     Route: 042
     Dates: start: 20061122, end: 20061122
  29. PHENYLEPHRINE [Concomitant]
     Indication: PRODUCT USED FOR UNKNOWN INDICATION
     Dosage: IV DRIP
     Route: 042
     Dates: start: 20061122
  30. CEFUROXIME SODIUM [Concomitant]
     Indication: PRODUCT USED FOR UNKNOWN INDICATION
     Route: 042
     Dates: start: 20061122, end: 20061122

REACTIONS (10)
  - PAIN [None]
  - STRESS [None]
  - ANXIETY [None]
  - INJURY [None]
  - UNEVALUABLE EVENT [None]
  - RENAL IMPAIRMENT [None]
  - RENAL FAILURE [None]
  - EMOTIONAL DISTRESS [None]
  - RENAL INJURY [None]
  - FEAR [None]
